FAERS Safety Report 8742398 (Version 3)
Quarter: 2012Q4

REPORT INFORMATION
  Report Type: 
  Country: CA (occurrence: CA)
  Receive Date: 20120824
  Receipt Date: 20121211
  Transmission Date: 20130627
  Serious: Yes (Hospitalization, Other)
  Sender: FDA-Public Use
  Company Number: CA-ELI_LILLY_AND_COMPANY-CA201208005503

PATIENT
  Age: 53 Year
  Sex: Male
  Weight: 140 kg

DRUGS (2)
  1. CIALIS [Suspect]
     Indication: ERECTILE DYSFUNCTION
     Dosage: 20 mg, prn
     Dates: start: 2006
  2. RAMIPRIL [Concomitant]
     Dosage: 1 DF, unknown

REACTIONS (1)
  - Retinal detachment [Recovered/Resolved]
